FAERS Safety Report 8024485-7 (Version None)
Quarter: 2011Q4

REPORT INFORMATION
  Report Type: 
  Country: None (occurrence: None)
  Receive Date: 20111130
  Receipt Date: 20110907
  Transmission Date: 20120403
  Serious: Yes (Life-Threatening, Hospitalization)
  Sender: FDA-Public Use
  Company Number: 330045

PATIENT
  Age: 52 Year
  Sex: Female
  Weight: 63.5 kg

DRUGS (1)
  1. NOVOLOG [Suspect]
     Indication: TYPE 1 DIABETES MELLITUS
     Dosage: SLIDING SCALSE, SUBCUTAN.-PUMP 9.9 U, SINGLE, SUBCUTANEOUS
     Route: 058
     Dates: end: 20110506

REACTIONS (3)
  - BRAIN INJURY [None]
  - INCORRECT DOSE ADMINISTERED [None]
  - HYPOGLYCAEMIC UNCONSCIOUSNESS [None]
